FAERS Safety Report 14198716 (Version 1)
Quarter: 2017Q4

REPORT INFORMATION
  Report Type: Spontaneous
  Country: US (occurrence: US)
  Receive Date: 20171117
  Receipt Date: 20171117
  Transmission Date: 20180321
  Serious: Yes (Other)
  Sender: FDA-Public Use
  Company Number: US-PFIZER INC-2017492882

PATIENT
  Age: 25 Year
  Sex: Female

DRUGS (1)
  1. SUCCINYLCHOLINE CHLORIDE. [Suspect]
     Active Substance: SUCCINYLCHOLINE CHLORIDE
     Dosage: UNK
     Dates: start: 19751028

REACTIONS (1)
  - Drug effect prolonged [Unknown]

NARRATIVE: CASE EVENT DATE: 19751028
